FAERS Safety Report 16427553 (Version 2)
Quarter: 2019Q3

REPORT INFORMATION
  Report Type: Spontaneous
  Country: PE (occurrence: PE)
  Receive Date: 20190613
  Receipt Date: 20190715
  Transmission Date: 20191004
  Serious: No
  Sender: FDA-Public Use
  Company Number: PE-PROVELL PHARMACEUTICALS-2068199

PATIENT
  Age: 59 Year
  Sex: Male

DRUGS (4)
  1. LEVOSTA [Concomitant]
  2. EUTHYROX [Suspect]
     Active Substance: LEVOTHYROXINE SODIUM
     Indication: HYPOTHYROIDISM
     Dates: start: 201901
  3. JANUVIA [Concomitant]
     Active Substance: SITAGLIPTIN PHOSPHATE
  4. EUTHYROX [Suspect]
     Active Substance: LEVOTHYROXINE SODIUM
     Dates: start: 2019

REACTIONS (6)
  - Drug ineffective [None]
  - Head titubation [None]
  - Underweight [None]
  - Asthenia [None]
  - Dysarthria [None]
  - Tremor [None]
